FAERS Safety Report 5469601-6 (Version None)
Quarter: 2007Q3

REPORT INFORMATION
  Report Type: 
  Country: None (occurrence: None)
  Receive Date: 20070925
  Receipt Date: 20070925
  Transmission Date: 20080115
  Serious: Yes (Death)
  Sender: FDA-Public Use
  Company Number: None

PATIENT
  Sex: Female
  Weight: 60.1 kg

DRUGS (12)
  1. LEVAQUIN [Suspect]
     Indication: PYREXIA
     Dosage: DAILY PO
     Route: 048
     Dates: start: 20070914, end: 20070920
  2. CELEXA [Concomitant]
  3. LEVOTHYROXINE SODIUM [Concomitant]
  4. CLARITIN [Concomitant]
  5. MULTI-VITAMIN [Concomitant]
  6. ACYCLOVIR [Concomitant]
  7. PEPCID AC [Concomitant]
  8. CITRACAL D [Concomitant]
  9. ALBUTEROL [Concomitant]
  10. LORAZEPAM [Concomitant]
  11. PROCHLORPERAZINE [Concomitant]
  12. ONDANSETRON [Concomitant]

REACTIONS (8)
  - DEHYDRATION [None]
  - FATIGUE [None]
  - HEPATITIS CHOLESTATIC [None]
  - NAUSEA [None]
  - ORAL INTAKE REDUCED [None]
  - RENAL FAILURE [None]
  - THROMBOCYTOPENIA [None]
  - VOMITING [None]
